FAERS Safety Report 19617209 (Version 1)
Quarter: 2021Q3

REPORT INFORMATION
  Report Type: Spontaneous
  Country: US (occurrence: US)
  Receive Date: 20210727
  Receipt Date: 20210727
  Transmission Date: 20211014
  Serious: No
  Sender: FDA-Public Use
  Company Number: US-ABBVIE-20K-163-3624514-00

PATIENT
  Age: 27 Year
  Sex: Female

DRUGS (3)
  1. LEVOTHYROXINE. [Suspect]
     Active Substance: LEVOTHYROXINE
     Indication: HYPOTHYROIDISM
     Route: 048
  2. ARMOUR THYROID [Suspect]
     Active Substance: THYROID, PORCINE
     Indication: HYPOTHYROIDISM
     Route: 065
     Dates: start: 2020
  3. LIOTHYRONINE [Concomitant]
     Active Substance: LIOTHYRONINE
     Indication: HYPOTHYROIDISM

REACTIONS (7)
  - Arthralgia [Unknown]
  - Alopecia [Unknown]
  - Fatigue [Unknown]
  - Panic attack [Unknown]
  - Drug intolerance [Unknown]
  - Drug ineffective [Not Recovered/Not Resolved]
  - Skin fissures [Unknown]

NARRATIVE: CASE EVENT DATE: 202008
